FAERS Safety Report 6262306-3 (Version None)
Quarter: 2009Q3

REPORT INFORMATION
  Report Type: 
  Country: None (occurrence: None)
  Receive Date: 20090709
  Receipt Date: 20090706
  Transmission Date: 20100115
  Serious: Yes (Death, Hospitalization)
  Sender: FDA-Public Use
  Company Number: IT-BRISTOL-MYERS SQUIBB COMPANY-14667521

PATIENT
  Age: 79 Year
  Sex: Female
  Weight: 68 kg

DRUGS (9)
  1. MEGESTROL ACETATE [Suspect]
     Indication: ILL-DEFINED DISORDER
     Dosage: TAB
     Route: 048
     Dates: start: 20060328
  2. SUNITINIB MALATE [Concomitant]
     Indication: METASTATIC RENAL CELL CARCINOMA
     Dosage: 50MG FROM 10 APR2006
     Route: 048
     Dates: start: 20060410
  3. FENTANYL [Concomitant]
     Dates: start: 20060101
  4. COMBISARTAN [Concomitant]
     Dates: start: 19960101
  5. LEVOTHYROXINE SODIUM [Concomitant]
     Dates: start: 19880101
  6. DEXAMETHASONE [Concomitant]
     Dates: start: 20060410
  7. DICLOFENAC [Concomitant]
     Dates: start: 20060328
  8. PARACETAMOL [Concomitant]
     Dates: start: 20060413, end: 20060428
  9. DIOVAN HCT [Concomitant]

REACTIONS (1)
  - PULMONARY EMBOLISM [None]
